FAERS Safety Report 6357270-2 (Version None)
Quarter: 2009Q3

REPORT INFORMATION
  Report Type: 
  Country: None (occurrence: None)
  Receive Date: 20090916
  Receipt Date: 20090904
  Transmission Date: 20100115
  Serious: Yes (Disabling)
  Sender: FDA-Public Use
  Company Number: PHEH2009US08407

PATIENT
  Sex: Male
  Weight: 32.086 kg

DRUGS (11)
  1. RECLAST [Suspect]
     Indication: OSTEOPOROSIS
     Dosage: 5 MG, ONCE/SINGLE
     Dates: start: 20090727
  2. NEXIUM [Concomitant]
     Indication: GASTROOESOPHAGEAL REFLUX DISEASE
     Dosage: 40 MG, QD
     Route: 048
  3. NEXIUM [Concomitant]
     Indication: PEPTIC ULCER
  4. PLAVIX [Concomitant]
     Indication: TRANSIENT ISCHAEMIC ATTACK
     Dosage: 75 MG, QD
     Route: 048
  5. PRAVACHOL [Concomitant]
  6. VITAMINS NOS [Concomitant]
  7. VITAMIN D [Concomitant]
     Indication: OSTEOPOROSIS
     Dosage: 1400 IU, QD
     Route: 048
  8. URECHOLINE [Concomitant]
     Indication: PROSTATE CANCER
     Dosage: 10 MG, QD
     Route: 048
  9. ASPIRIN [Concomitant]
     Indication: TRANSIENT ISCHAEMIC ATTACK
     Dosage: 81 MG, QD
     Route: 048
  10. CALCIUM [Concomitant]
  11. TOPROL-XL [Concomitant]
     Indication: HYPERTENSION
     Dosage: 20 MG, QD
     Route: 048

REACTIONS (10)
  - BLOOD CALCIUM DECREASED [None]
  - BLOOD POTASSIUM INCREASED [None]
  - BLOOD SODIUM DECREASED [None]
  - CONFUSIONAL STATE [None]
  - HALLUCINATION [None]
  - JOINT EFFUSION [None]
  - PAIN [None]
  - PLICA SYNDROME [None]
  - PYREXIA [None]
  - THROMBOPHLEBITIS SUPERFICIAL [None]
